FAERS Safety Report 23555161 (Version 4)
Quarter: 2024Q4

REPORT INFORMATION
  Report Type: Spontaneous
  Country: DE (occurrence: DE)
  Receive Date: 20240222
  Receipt Date: 20241106
  Transmission Date: 20250115
  Serious: Yes (Death, Hospitalization, Other)
  Sender: SANDOZ
  Company Number: DE-KRKA-DE2023K13894STU

PATIENT
  Age: 80 Year
  Sex: Female
  Weight: 51 kg

DRUGS (13)
  1. DEXAMETHASONE [Suspect]
     Active Substance: DEXAMETHASONE
     Dosage: 12 MG, 1X PER DAY ON CYCLE DAYS 1, 8, 15, 22 OF A 28 DAYS CYCLE
     Route: 065
     Dates: start: 20231220, end: 20240110
  2. DEXAMETHASONE [Suspect]
     Active Substance: DEXAMETHASONE
     Indication: Plasma cell myeloma
     Dosage: 20 MG, PER DAY ON CYCLE DAYS 1,8,15, 22 OF A 28 DAYS LONG CYCLE
     Route: 065
     Dates: start: 20230803
  3. DARATUMUMAB [Suspect]
     Active Substance: DARATUMUMAB
     Dosage: 1800 MG, PER DAY ON CYCLE DAYS 1, 8, 15, 22 OF A 28 DAYS LONG CYCLE
     Route: 058
     Dates: start: 20231220, end: 20240110
  4. DARATUMUMAB [Suspect]
     Active Substance: DARATUMUMAB
     Indication: Plasma cell myeloma
     Dosage: 1800 MG, PER DAY ON CYCLE DAYS 1,8,15, 22 OF A 28 DAYS LONG CYCLE
     Route: 058
     Dates: start: 20230803
  5. LENALIDOMIDE [Suspect]
     Active Substance: LENALIDOMIDE
     Indication: Plasma cell myeloma
     Dosage: 15 MG, PER DAY ON CYCLE DAYS 1-21 OF A 28 DAYS LONG CYCLE
     Route: 048
     Dates: start: 20230803, end: 20230831
  6. LENALIDOMIDE [Suspect]
     Active Substance: LENALIDOMIDE
     Dosage: 15 MG, PER DAY ON CYCLE DAYS 1-21 OF A 28 DAYS LONG CYCLE
     Route: 048
     Dates: start: 20230803
  7. LENALIDOMIDE [Suspect]
     Active Substance: LENALIDOMIDE
     Dosage: 15 MG, PER DAY ON CYCLE DAYS 1-21 OF A 28 DAYS LONG CYCLE
     Route: 048
     Dates: start: 20231220, end: 20240110
  8. AMLODIPINE [Concomitant]
     Active Substance: AMLODIPINE BESYLATE
     Indication: Product used for unknown indication
     Dosage: 5 MG
     Route: 065
  9. AMLODIPINE [Concomitant]
     Active Substance: AMLODIPINE BESYLATE
     Dosage: UNK
     Route: 065
  10. BISOPROLOL [Concomitant]
     Active Substance: BISOPROLOL\BISOPROLOL FUMARATE
     Indication: Product used for unknown indication
     Dosage: 5 MG
     Route: 065
  11. BISOPROLOL [Concomitant]
     Active Substance: BISOPROLOL\BISOPROLOL FUMARATE
     Dosage: UNK
     Route: 065
  12. RAMIPRIL [Concomitant]
     Active Substance: RAMIPRIL
     Indication: Product used for unknown indication
     Dosage: 5 MG
     Route: 065
  13. RAMIPRIL [Concomitant]
     Active Substance: RAMIPRIL
     Dosage: UNK
     Route: 065

REACTIONS (2)
  - Multiple organ dysfunction syndrome [Fatal]
  - Bullous erysipelas [Recovered/Resolved]

NARRATIVE: CASE EVENT DATE: 20230831
